FAERS Safety Report 4641998-6 (Version None)
Quarter: 2005Q2

REPORT INFORMATION
  Report Type: 
  Country: None (occurrence: None)
  Receive Date: 20050421
  Receipt Date: 20050404
  Transmission Date: 20051028
  Serious: Yes (Death, Hospitalization, Other)
  Sender: FDA-Public Use
  Company Number: USA040874404

PATIENT
  Age: 78 Year
  Sex: Female

DRUGS (2)
  1. ZYPREXA [Suspect]
     Dosage: 2.5 MG/2 DAY
     Route: 048
     Dates: start: 20020101
  2. ACETYLSALICYLIC ACID SRT [Concomitant]

REACTIONS (8)
  - ABDOMINAL PAIN UPPER [None]
  - CARDIAC FAILURE CONGESTIVE [None]
  - CEREBROVASCULAR ACCIDENT [None]
  - FALL [None]
  - HIP FRACTURE [None]
  - INTESTINAL PERFORATION [None]
  - PULMONARY THROMBOSIS [None]
  - SEPSIS [None]
